FAERS Safety Report 23796788 (Version 1)
Quarter: 2024Q2

REPORT INFORMATION
  Report Type: Spontaneous
  Country: US (occurrence: US)
  Receive Date: 20240430
  Receipt Date: 20240430
  Transmission Date: 20240715
  Serious: Yes (Hospitalization)
  Sender: FDA-Public Use
  Company Number: US-PADAGIS-2024PAD00720

PATIENT

DRUGS (8)
  1. IBUPROFEN [Suspect]
     Active Substance: IBUPROFEN
     Indication: Product used for unknown indication
     Dosage: UNK
     Route: 065
  2. FOLLITROPIN ALFA [Concomitant]
     Active Substance: FOLLITROPIN ALFA
     Indication: Product used for unknown indication
     Dosage: 600 IU
     Route: 065
  3. MENOTROPINS [Concomitant]
     Active Substance: MENOTROPINS
     Indication: Product used for unknown indication
     Dosage: 375 IU
     Route: 065
  4. LETROZOLE [Concomitant]
     Active Substance: LETROZOLE
     Indication: Product used for unknown indication
     Dosage: 10 MG, QD (NIGHT) DAYS 1-5
  5. GANIRELIX ACETATE [Concomitant]
     Active Substance: GANIRELIX ACETATE
     Indication: Product used for unknown indication
     Dosage: 250??G ON STIMULATION DAYS 7 AND 8
     Route: 065
  6. METFORMIN [Concomitant]
     Active Substance: METFORMIN HYDROCHLORIDE
     Indication: Ovarian hyperstimulation syndrome
     Dosage: 500 MG, QD
     Route: 065
  7. BROMOCRIPTINE [Concomitant]
     Active Substance: BROMOCRIPTINE
     Indication: Ovarian hyperstimulation syndrome
     Dosage: 0.25 MG, QD (EVERY NIGHT AT BEDTIME) (STARTED THE NIGHT OF THE TRIGGER SHOT)
     Route: 067
  8. ONDANSETRON [Concomitant]
     Active Substance: ONDANSETRON
     Indication: Nausea
     Dosage: UNK
     Route: 065

REACTIONS (1)
  - Gastritis [Unknown]
